FAERS Safety Report 22949393 (Version 5)
Quarter: 2023Q4

REPORT INFORMATION
  Report Type: Spontaneous
  Country: US (occurrence: US)
  Receive Date: 20230915
  Receipt Date: 20231206
  Transmission Date: 20240110
  Serious: No
  Sender: FDA-Public Use
  Company Number: US-PFIZER INC-202300297977

PATIENT
  Age: 60 Year
  Sex: Female
  Weight: 63.05 kg

DRUGS (2)
  1. PREMARIN [Suspect]
     Active Substance: ESTROGENS, CONJUGATED
     Indication: Atrophy
     Dosage: UNK, 2X/WEEK(PEA SIZE AMOUNT ON FINGER TWICE A WEEK, INSERTED VAGINALLY)
     Route: 067
     Dates: start: 20230814, end: 20230908
  2. PREMARIN [Suspect]
     Active Substance: ESTROGENS, CONJUGATED
     Indication: Urinary tract infection

REACTIONS (7)
  - Limb discomfort [Recovering/Resolving]
  - Paraesthesia [Unknown]
  - Feeling abnormal [Unknown]
  - Palpitations [Recovering/Resolving]
  - Off label use [Unknown]
  - Product prescribing error [Unknown]
  - Wrong technique in product usage process [Unknown]
